FAERS Safety Report 5414161-9 (Version None)
Quarter: 2007Q3

REPORT INFORMATION
  Report Type: 
  Country: None (occurrence: None)
  Receive Date: 20070713
  Receipt Date: 20070330
  Transmission Date: 20080115
  Serious: Yes (Hospitalization, Other)
  Sender: FDA-Public Use
  Company Number: US-JNJFOC-20061004596

PATIENT
  Age: 24 Year
  Sex: Female
  Weight: 96.1626 kg

DRUGS (4)
  1. ORTHO EVRA [Suspect]
     Indication: DRUG USE FOR UNKNOWN INDICATION
     Dosage: TRANSDERMAL
     Route: 062
     Dates: start: 20040101, end: 20040601
  2. DILANTIN KAPSEAL [Concomitant]
  3. FOLATE (FOLATE SODIUM) [Concomitant]
  4. COLACE (DOCUSATE SODIUM) [Concomitant]

REACTIONS (1)
  - PULMONARY EMBOLISM [None]
